FAERS Safety Report 7741898-9 (Version None)
Quarter: 2011Q3

REPORT INFORMATION
  Report Type: 
  Country: None (occurrence: None)
  Receive Date: 20110906
  Receipt Date: 20110826
  Transmission Date: 20111222
  Serious: Yes (Death)
  Sender: FDA-Public Use
  Company Number: LEO-2011-00701

PATIENT
  Age: 51 Year
  Sex: Female

DRUGS (11)
  1. INNOHEP [Suspect]
     Indication: SUPERIOR VENA CAVA SYNDROME
     Dosage: 10000 IU, SUBCUTANEOUS
     Route: 058
     Dates: start: 20110428, end: 20110611
  2. TARCEVA [Suspect]
     Indication: ADENOCARCINOMA
     Dosage: 150 MG, PER ORAL
     Route: 048
     Dates: start: 20110422, end: 20110611
  3. TOLEXINE (DOXYCYCLINE) [Concomitant]
  4. SPASFON (PHLOROGLUCINOL, TRIMETHYLPHLOROGLUCINOL) [Concomitant]
  5. CELLUVISC (CARMELLOSE SODIUM) [Concomitant]
  6. SPIRIVA [Concomitant]
  7. PROTIFAR (MINERALS NOS, CARBOHYDRATES NOS, PROTEINS NOS, LIPIDS NOS) [Concomitant]
  8. MUCOMYST [Concomitant]
  9. SERETIDE (FLUTICASONE PROPIONATE, SALMETEROL XINAFOATE) [Concomitant]
  10. NEXIUM [Concomitant]
  11. AUGMENTIN (AMOXICILLIN SODIUM, CLAVULANATE POTASSIUM) [Concomitant]

REACTIONS (2)
  - HAEMOGLOBIN DECREASED [None]
  - HAEMOPTYSIS [None]
